FAERS Safety Report 4579465-0 (Version None)
Quarter: 2005Q1

REPORT INFORMATION
  Report Type: 
  Country: None (occurrence: None)
  Receive Date: 20050209
  Receipt Date: 20050131
  Transmission Date: 20050727
  Serious: Yes (Other)
  Sender: FDA-Public Use
  Company Number: JP_041004822

PATIENT
  Age: 40 Year
  Sex: Female
  Weight: 52 kg

DRUGS (6)
  1. ZYPREXA [Suspect]
     Indication: SCHIZOPHRENIA
     Dosage: 10 MG/1 DAY
     Dates: start: 20040928, end: 20041013
  2. VITAMIN A [Concomitant]
  3. ROHYPNOL (FLUNITRAZEPAM EG) [Concomitant]
  4. PURSENNID [Concomitant]
  5. RISPERDAL [Concomitant]
  6. AKINETON [Concomitant]

REACTIONS (9)
  - BLOOD CREATINE PHOSPHOKINASE INCREASED [None]
  - DISEASE RECURRENCE [None]
  - ELECTROCARDIOGRAM ABNORMAL [None]
  - ELECTROCARDIOGRAM QT PROLONGED [None]
  - ELECTROCARDIOGRAM ST-T SEGMENT ABNORMAL [None]
  - EXCITABILITY [None]
  - HALLUCINATION, AUDITORY [None]
  - INSOMNIA [None]
  - SCHIZOPHRENIA [None]
